FAERS Safety Report 8829023 (Version 2)
Quarter: 2012Q4

REPORT INFORMATION
  Report Type: 
  Country: US (occurrence: US)
  Receive Date: 20121008
  Receipt Date: 20121019
  Transmission Date: 20130627
  Serious: Yes (Hospitalization)
  Sender: FDA-Public Use
  Company Number: US-ACTELION-A-NJ2012-66522

PATIENT
  Age: 26 Year
  Sex: Female

DRUGS (3)
  1. VELETRI [Suspect]
     Indication: PULMONARY ARTERIAL HYPERTENSION
     Dosage: 31.8 ng/kg, per min
     Route: 041
     Dates: start: 20120502, end: 20120918
  2. TRACLEER [Suspect]
     Indication: PULMONARY ARTERIAL HYPERTENSION
     Dosage: UNK
     Route: 048
  3. ASPIRIN [Concomitant]

REACTIONS (8)
  - Pulmonary hypertension [Recovering/Resolving]
  - Oxygen saturation decreased [Recovering/Resolving]
  - Haemoptysis [Recovering/Resolving]
  - Pulmonary oedema [Recovering/Resolving]
  - Hypoxia [Recovering/Resolving]
  - Dyspnoea [Unknown]
  - Headache [Unknown]
  - Flushing [Unknown]
